FAERS Safety Report 11536706 (Version 1)
Quarter: 2015Q3

REPORT INFORMATION
  Report Type: Spontaneous
  Country: US (occurrence: US)
  Receive Date: 20150922
  Receipt Date: 20150922
  Transmission Date: 20151125
  Serious: Yes (Life-Threatening, Hospitalization, Other)
  Sender: FDA-Public Use
  Company Number: US-BANPHARM-20154226

PATIENT
  Age: 23 Year
  Sex: Male

DRUGS (1)
  1. DIPHENHYDRAMINE UNKNOWN PRODUCT [Suspect]
     Active Substance: DIPHENHYDRAMINE
     Dosage: DF 2000 - 2500MG, ONCE,

REACTIONS (9)
  - Generalised tonic-clonic seizure [Recovered/Resolved]
  - Blood potassium decreased [None]
  - Conduction disorder [Recovered/Resolved]
  - Intentional product misuse [Unknown]
  - Tachycardia [Recovered/Resolved]
  - Ventricular extrasystoles [Recovered/Resolved]
  - Blood glucose increased [None]
  - Metabolic acidosis [Recovered/Resolved]
  - Lipase increased [Unknown]
